FAERS Safety Report 18529383 (Version 6)
Quarter: 2021Q3

REPORT INFORMATION
  Report Type: Report from Study
  Country: BE (occurrence: BE)
  Receive Date: 20201120
  Receipt Date: 20210802
  Transmission Date: 20211014
  Serious: Yes (Hospitalization, Other)
  Sender: FDA-Public Use
  Company Number: BE-BAUSCH-BL-2020-033126

PATIENT
  Age: 76 Year
  Sex: Male
  Weight: 62 kg

DRUGS (6)
  1. CAELYX [Suspect]
     Active Substance: DOXORUBICIN HYDROCHLORIDE
     Indication: PRODUCT USED FOR UNKNOWN INDICATION
     Route: 065
     Dates: start: 20200511
  2. BURINEX [Concomitant]
     Active Substance: BUMETANIDE
     Indication: OEDEMA
     Dates: start: 20200630, end: 20200720
  3. DEXAMETHASONE. [Suspect]
     Active Substance: DEXAMETHASONE
     Indication: PRODUCT USED FOR UNKNOWN INDICATION
     Route: 065
  4. BORTEZOMIB. [Suspect]
     Active Substance: BORTEZOMIB
     Indication: PRODUCT USED FOR UNKNOWN INDICATION
     Route: 065
     Dates: start: 20200511, end: 20200602
  5. ULTRA K [Concomitant]
     Indication: HYPOKALAEMIA
     Dates: start: 20200703, end: 20200704
  6. BORTEZOMIB. [Suspect]
     Active Substance: BORTEZOMIB
     Route: 065
     Dates: start: 20200609, end: 20200630

REACTIONS (2)
  - Bacteraemia [Recovered/Resolved]
  - Joint dislocation [Recovered/Resolved]

NARRATIVE: CASE EVENT DATE: 20200703
